FAERS Safety Report 7867832-9 (Version None)
Quarter: 2011Q4

REPORT INFORMATION
  Report Type: 
  Country: None (occurrence: None)
  Receive Date: 20111025
  Receipt Date: 20111017
  Transmission Date: 20120403
  Serious: Yes (Other)
  Sender: FDA-Public Use
  Company Number: 1081929

PATIENT
  Age: 8 Year
  Sex: Female

DRUGS (5)
  1. IFOSFAMIDE [Suspect]
     Indication: EWING'S SARCOMA
  2. ETOPOSIDE [Suspect]
     Indication: EWING'S SARCOMA
  3. DACTINOMYCIN [Suspect]
     Indication: EWING'S SARCOMA
  4. VINCRISTINJE SULFATE [Suspect]
     Indication: EWING'S SARCOMA
  5. DOXORUBICIN HCL [Suspect]

REACTIONS (1)
  - TUBULOINTERSTITIAL NEPHRITIS [None]
